FAERS Safety Report 5651837-2 (Version None)
Quarter: 2008Q1

REPORT INFORMATION
  Report Type: 
  Country: None (occurrence: None)
  Receive Date: 20080304
  Receipt Date: 20080219
  Transmission Date: 20080703
  Serious: Yes (Hospitalization)
  Sender: FDA-Public Use
  Company Number: 2007BI026392

PATIENT
  Age: 54 Year
  Sex: Female
  Weight: 75.7507 kg

DRUGS (1)
  1. TYSABRI [Suspect]
     Indication: MULTIPLE SCLEROSIS
     Dosage: 300 MG;QM;IV
     Route: 042
     Dates: start: 20070501

REACTIONS (1)
  - NEUROMYELITIS OPTICA [None]
